FAERS Safety Report 9194942 (Version 1)
Quarter: 2013Q1

REPORT INFORMATION
  Report Type: Spontaneous
  Country: US (occurrence: US)
  Receive Date: 20130328
  Receipt Date: 20130328
  Transmission Date: 20140127
  Serious: No
  Sender: FDA-Public Use
  Company Number: US-ALLERGAN-1213238US

PATIENT
  Age: 61 Year
  Sex: Female

DRUGS (2)
  1. LATISSE 0.03% [Suspect]
     Indication: GROWTH OF EYELASHES
     Dosage: 2 GTT, QD
     Route: 061
  2. ORENCIA [Concomitant]
     Indication: RHEUMATOID ARTHRITIS
     Dosage: UNK UNK, Q MONTH
     Dates: start: 201109

REACTIONS (3)
  - Wrong technique in drug usage process [Unknown]
  - Inappropriate schedule of drug administration [Unknown]
  - Therapeutic response decreased [Unknown]
